FAERS Safety Report 19967277 (Version 2)
Quarter: 2021Q4

REPORT INFORMATION
  Report Type: Spontaneous
  Country: US (occurrence: US)
  Receive Date: 20211019
  Receipt Date: 20211223
  Transmission Date: 20220303
  Serious: Yes (Death, Life-Threatening, Hospitalization, Other)
  Sender: FDA-Public Use
  Company Number: US-MLMSERVICE-20211005-3150118-1

PATIENT
  Age: 64 Year
  Sex: Female

DRUGS (15)
  1. CYCLOPHOSPHAMIDE [Suspect]
     Active Substance: CYCLOPHOSPHAMIDE
     Indication: Acute lymphocytic leukaemia
     Dosage: UNK
     Route: 065
     Dates: start: 20190409
  2. DEXAMETHASONE [Suspect]
     Active Substance: DEXAMETHASONE
     Indication: Acute lymphocytic leukaemia
     Dosage: UNK
     Route: 065
     Dates: start: 20190409
  3. VINCRISTINE SULFATE [Suspect]
     Active Substance: VINCRISTINE SULFATE
     Indication: Acute lymphocytic leukaemia
     Dosage: UNK
     Route: 065
     Dates: start: 20190409
  4. BLINATUMOMAB [Suspect]
     Active Substance: BLINATUMOMAB
     Indication: Acute lymphocytic leukaemia
     Dosage: UNK
     Route: 065
     Dates: start: 20181212, end: 20190409
  5. ECULIZUMAB [Suspect]
     Active Substance: ECULIZUMAB
     Indication: Thrombotic microangiopathy
     Dosage: 900 MILLIGRAM
     Route: 065
     Dates: start: 20191125
  6. FLUDARABINE [Suspect]
     Active Substance: FLUDARABINE PHOSPHATE
     Indication: Product used for unknown indication
     Dosage: UNK
     Route: 065
  7. INOTUZUMAB OZOGAMICIN [Suspect]
     Active Substance: INOTUZUMAB OZOGAMICIN
     Indication: Acute lymphocytic leukaemia
     Dosage: UNK
     Route: 065
     Dates: start: 20190409
  8. MYCOPHENOLATE MOFETIL [Suspect]
     Active Substance: MYCOPHENOLATE MOFETIL
     Indication: Prophylaxis against graft versus host disease
     Dosage: UNK
     Route: 065
     Dates: start: 20190927
  9. PREDNISONE [Suspect]
     Active Substance: PREDNISONE
     Indication: Prophylaxis against graft versus host disease
     Dosage: UNK
     Route: 065
     Dates: start: 201911
  10. PREDNISONE [Suspect]
     Active Substance: PREDNISONE
     Dosage: 35 MILLIGRAM, ONCE A DAY (0.5 MG/KG)
     Route: 065
     Dates: start: 20191125
  11. RITUXIMAB [Suspect]
     Active Substance: RITUXIMAB
     Indication: Acute lymphocytic leukaemia
     Dosage: UNK
     Route: 065
     Dates: start: 2018, end: 201810
  12. RITUXIMAB [Suspect]
     Active Substance: RITUXIMAB
     Dosage: 10 MILLIGRAM, TWO TIMES A DAY
     Route: 065
     Dates: start: 20191125
  13. SIROLIMUS [Suspect]
     Active Substance: SIROLIMUS
     Indication: Product used for unknown indication
     Dosage: UNK
     Route: 065
  14. TACROLIMUS [Suspect]
     Active Substance: TACROLIMUS
     Indication: Prophylaxis against graft versus host disease
     Dosage: UNK
     Route: 065
     Dates: start: 20190927
  15. ATOVAQUONE [Concomitant]
     Active Substance: ATOVAQUONE
     Indication: Prophylaxis
     Dosage: 1500 MILLIGRAM, ONCE A DAY
     Route: 065
     Dates: start: 201809

REACTIONS (6)
  - Multiple organ dysfunction syndrome [Fatal]
  - Sepsis [Fatal]
  - Spontaneous bacterial peritonitis [Fatal]
  - Shock [Fatal]
  - Escherichia bacteraemia [Fatal]
  - Babesiosis [Fatal]

NARRATIVE: CASE EVENT DATE: 20191205
